FAERS Safety Report 6852140-5 (Version None)
Quarter: 2010Q3

REPORT INFORMATION
  Report Type: 
  Country: None (occurrence: None)
  Receive Date: 20100717
  Receipt Date: 20080108
  Transmission Date: 20110219
  Serious: No
  Sender: FDA-Public Use
  Company Number: US-PFIZER INC-2007092455

PATIENT
  Sex: Male
  Weight: 130.63 kg

DRUGS (8)
  1. CHANTIX [Suspect]
     Indication: SMOKING CESSATION THERAPY
     Dates: start: 20071001
  2. TRAMADOL [Interacting]
     Indication: ARTHRITIS
  3. ALLOPURINOL [Interacting]
     Indication: ARTHRITIS
  4. SPIRONOLACTONE [Concomitant]
  5. ALLOPURINOL [Concomitant]
  6. TRAZODONE HYDROCHLORIDE [Concomitant]
  7. ALL OTHER THERAPEUTIC PRODUCTS [Concomitant]
  8. SPIRIVA [Concomitant]

REACTIONS (4)
  - ARTHRALGIA [None]
  - DRUG INTERACTION [None]
  - HUNGER [None]
  - INSOMNIA [None]
